FAERS Safety Report 6218952-6 (Version None)
Quarter: 2009Q2

REPORT INFORMATION
  Report Type: 
  Country: None (occurrence: None)
  Receive Date: 20090608
  Receipt Date: 20090528
  Transmission Date: 20091009
  Serious: Yes (Hospitalization)
  Sender: FDA-Public Use
  Company Number: PHEH2009US05411

PATIENT

DRUGS (2)
  1. DIOVAN [Suspect]
     Dosage: UNK, UNK
  2. HYDROCHLOROTHIAZIDE [Suspect]
     Dosage: UNK, UNK

REACTIONS (1)
  - SYNCOPE [None]
